FAERS Safety Report 4342149-8 (Version None)
Quarter: 2004Q1

REPORT INFORMATION
  Report Type: 
  Country: None (occurrence: None)
  Receive Date: 20040329
  Receipt Date: 20040218
  Transmission Date: 20041129
  Serious: No
  Sender: FDA-Public Use
  Company Number: 04P-163-0250609-00

PATIENT
  Sex: Female

DRUGS (14)
  1. HUMIRA [Suspect]
     Indication: RHEUMATOID ARTHRITIS
     Dosage: 40 MG, 1 IN 2 WK, SUBCUTANEOUS
     Route: 058
     Dates: start: 20031201
  2. ATENOLOL [Concomitant]
  3. METHOTREXATE [Concomitant]
  4. FOLIC ACID [Concomitant]
  5. ALENDRONATE SODIUM [Concomitant]
  6. OXYCOCET [Concomitant]
  7. CALCIUM [Concomitant]
  8. ERGOCALCIFEROL [Concomitant]
  9. TRAZODONE HCL [Concomitant]
  10. LEVOTHYROXINE SODIUM [Concomitant]
  11. PREDNISONE [Concomitant]
  12. HYDROXYCHLOROQUINE PHOSPHATE [Concomitant]
  13. PSYLLIUM HYDROPHILIC MUCILLOID [Concomitant]
  14. SENNA [Concomitant]

REACTIONS (1)
  - INJECTION SITE BURNING [None]
